FAERS Safety Report 18290362 (Version 5)
Quarter: 2020Q4

REPORT INFORMATION
  Report Type: Report from Study
  Country: JP (occurrence: JP)
  Receive Date: 20200921
  Receipt Date: 20201130
  Transmission Date: 20210113
  Serious: Yes (Hospitalization)
  Sender: FDA-Public Use
  Company Number: JP-UCBSA-2020037225

PATIENT
  Age: 2 Year
  Sex: Male
  Weight: 11.5 kg

DRUGS (8)
  1. LEVETIRACETAM. [Suspect]
     Active Substance: LEVETIRACETAM
     Dosage: 40 MILLIGRAM/KILOGRAM, ONCE DAILY (QD)
     Route: 048
     Dates: start: 20200609, end: 202006
  2. MYSTAN [Concomitant]
     Active Substance: CLOBAZAM
     Indication: EPILEPSY
     Dosage: 50 MILLIGRAM, 2X/DAY (BID)
     Dates: start: 20200827
  3. EXCEGRAN [Concomitant]
     Active Substance: ZONISAMIDE
     Dosage: 30 MILLIGRAM, 2X/DAY (BID)
     Dates: start: 20200908
  4. LEVETIRACETAM. [Suspect]
     Active Substance: LEVETIRACETAM
     Indication: PARTIAL SEIZURES
     Dosage: 20 MILLIGRAM/KILOGRAM, ONCE DAILY (QD)
     Route: 048
     Dates: start: 20200526, end: 2020
  5. LEVETIRACETAM. [Suspect]
     Active Substance: LEVETIRACETAM
     Dosage: 60 MILLIGRAM/KILOGRAM, ONCE DAILY (QD)
     Route: 048
     Dates: start: 20200624, end: 2020
  6. LEVETIRACETAM. [Suspect]
     Active Substance: LEVETIRACETAM
     Dosage: 40 MILLIGRAM/KILOGRAM, ONCE DAILY (QD)
     Route: 048
     Dates: start: 20200804, end: 202008
  7. EXCEGRAN [Concomitant]
     Active Substance: ZONISAMIDE
     Indication: EPILEPSY
     Dosage: 20 MILLIGRAM, 2X/DAY (BID)
     Dates: start: 20200827, end: 20200907
  8. LEVETIRACETAM. [Suspect]
     Active Substance: LEVETIRACETAM
     Dosage: 20 MILLIGRAM/KILOGRAM, ONCE DAILY (QD)
     Route: 048
     Dates: start: 20200827, end: 20200908

REACTIONS (1)
  - Epilepsy [Recovered/Resolved]

NARRATIVE: CASE EVENT DATE: 20200914
